FAERS Safety Report 5793015-2 (Version None)
Quarter: 2008Q2

REPORT INFORMATION
  Report Type: 
  Country: None (occurrence: None)
  Receive Date: 20080627
  Receipt Date: 20080619
  Transmission Date: 20081010
  Serious: Yes (Hospitalization)
  Sender: FDA-Public Use
  Company Number: FR-AMGEN-UK288534

PATIENT
  Sex: Female

DRUGS (10)
  1. NEULASTA [Suspect]
     Indication: CHEMOTHERAPY
     Route: 058
     Dates: start: 20080320, end: 20080410
  2. CISPLATIN [Concomitant]
     Dates: start: 20080212
  3. FLUOROURACIL [Concomitant]
     Dates: start: 20080212
  4. SOLU-MEDROL [Concomitant]
     Dates: start: 20080212
  5. ZOPHREN [Concomitant]
     Dates: start: 20080212
  6. EMEND [Concomitant]
     Dates: start: 20080212
  7. LIPANTHYL [Concomitant]
  8. TARDYFERON [Concomitant]
  9. OMEPRAZOLE [Concomitant]
  10. SPASFON [Concomitant]

REACTIONS (3)
  - FEBRILE BONE MARROW APLASIA [None]
  - MUCOSAL INFLAMMATION [None]
  - THERAPEUTIC RESPONSE DECREASED [None]
